FAERS Safety Report 19890799 (Version 1)
Quarter: 2021Q3

REPORT INFORMATION
  Report Type: Spontaneous
  Country: US (occurrence: US)
  Receive Date: 20210927
  Receipt Date: 20210927
  Transmission Date: 20211014
  Serious: Yes (Hospitalization, Other)
  Sender: FDA-Public Use
  Company Number: US-TEVA-2021-US-1912755

PATIENT
  Age: 57 Year
  Sex: Male

DRUGS (55)
  1. AZACITIDINE. [Suspect]
     Active Substance: AZACITIDINE
     Indication: PLASMA CELL MYELOMA
     Dosage: SEVENTH LINE TREATMENT
     Route: 065
  2. DARATUMUMAB [Suspect]
     Active Substance: DARATUMUMAB
     Dosage: FIFTH LINE TREATMENT
     Route: 065
  3. TACROLIMUS. [Suspect]
     Active Substance: TACROLIMUS
     Indication: CHRONIC GRAFT VERSUS HOST DISEASE IN LIVER
  4. CISPLATIN. [Suspect]
     Active Substance: CISPLATIN
     Dosage: EIGHTH LINE TREATMENT
     Route: 065
  5. DEXAMETHASONE. [Suspect]
     Active Substance: DEXAMETHASONE
     Dosage: SECOND LINE TREATMENT
     Route: 065
  6. DEXAMETHASONE. [Suspect]
     Active Substance: DEXAMETHASONE
     Dosage: FIFTH LINE TREATMENT
     Route: 065
  7. ETOPOSIDE. [Suspect]
     Active Substance: ETOPOSIDE
     Indication: BONE MARROW CONDITIONING REGIMEN
     Dosage: EIGHTH LINE TREATMENT
     Route: 065
  8. BORTEZOMIB. [Suspect]
     Active Substance: BORTEZOMIB
     Indication: PLASMA CELL MYELOMA
     Dosage: FIRST LINE TREATMENT
     Route: 065
  9. POMALIDOMIDE [Suspect]
     Active Substance: POMALIDOMIDE
     Indication: PLASMA CELL MYELOMA
     Dosage: FOURTH LINE TREATMENT
     Route: 065
  10. ADENOSINE. [Concomitant]
     Active Substance: ADENOSINE
     Indication: SUPRAVENTRICULAR TACHYCARDIA
     Route: 065
  11. DEXAMETHASONE. [Suspect]
     Active Substance: DEXAMETHASONE
     Indication: PLASMA CELL MYELOMA
     Dosage: FIRST LINE TREATMENT
     Route: 065
  12. DEXAMETHASONE. [Suspect]
     Active Substance: DEXAMETHASONE
     Dosage: SIXTH LINE TREATMENT
     Route: 065
  13. CARFILZOMIB [Suspect]
     Active Substance: CARFILZOMIB
     Dosage: EIGHTH LINE TREATMENT
     Route: 065
  14. BORTEZOMIB. [Suspect]
     Active Substance: BORTEZOMIB
     Route: 058
  15. CYTARABINE. [Suspect]
     Active Substance: CYTARABINE
     Indication: PLASMA CELL MYELOMA
     Dosage: EIGHTH LINE TREATMENT
     Route: 065
  16. CYTARABINE. [Suspect]
     Active Substance: CYTARABINE
     Indication: BONE MARROW CONDITIONING REGIMEN
  17. CARFILZOMIB [Suspect]
     Active Substance: CARFILZOMIB
     Indication: PLASMA CELL MYELOMA
     Dosage: FIFTH LINE TREATMENT
     Route: 065
  18. CARFILZOMIB [Suspect]
     Active Substance: CARFILZOMIB
     Dosage: NINTH LINE TREATMENT
     Route: 065
  19. CYCLOPHOSPHAMIDE. [Suspect]
     Active Substance: CYCLOPHOSPHAMIDE
     Indication: PLASMA CELL MYELOMA
     Dosage: FIRST LINE TREATMENT
     Route: 065
  20. SELINEXOR [Suspect]
     Active Substance: SELINEXOR
     Dosage: 14.2857 MILLIGRAM DAILY;
     Route: 065
  21. VANCOMYCIN [Concomitant]
     Active Substance: VANCOMYCIN
     Indication: CLOSTRIDIUM DIFFICILE COLITIS
     Route: 065
  22. ETOPOSIDE. [Suspect]
     Active Substance: ETOPOSIDE
     Indication: PLASMA CELL MYELOMA
     Dosage: SIXTH LINE TREATMENT
     Route: 065
  23. MELPHALAN. [Suspect]
     Active Substance: MELPHALAN
     Indication: STEM CELL TRANSPLANT
     Route: 065
  24. MELPHALAN. [Suspect]
     Active Substance: MELPHALAN
     Indication: PLASMA CELL MYELOMA
  25. CARFILZOMIB [Suspect]
     Active Substance: CARFILZOMIB
     Dosage: SIXTH LINE TREATMENT
     Route: 065
  26. CARFILZOMIB [Suspect]
     Active Substance: CARFILZOMIB
     Dosage: DURING CYCLE 10 OF NINTH LINE TREATMENT (27 MG/M2,1 )
     Route: 065
  27. DARATUMUMAB [Suspect]
     Active Substance: DARATUMUMAB
     Indication: PLASMA CELL MYELOMA
     Dosage: FOURTH LINE TREATMENT
     Route: 065
  28. LIPOSOMAL DOXORUBICIN HCL [Suspect]
     Active Substance: DOXORUBICIN HYDROCHLORIDE
     Indication: PLASMA CELL MYELOMA
     Dosage: SIXTH LINE TREATMENT
     Route: 065
  29. CARMUSTINE. [Suspect]
     Active Substance: CARMUSTINE
     Indication: BONE MARROW CONDITIONING REGIMEN
     Dosage: EIGHTH LINE TREATMENT
     Route: 065
  30. TACROLIMUS. [Suspect]
     Active Substance: TACROLIMUS
     Indication: CHRONIC GRAFT VERSUS HOST DISEASE IN SKIN
  31. BENDAMUSTINE [Suspect]
     Active Substance: BENDAMUSTINE
     Dosage: SIXTH LINE TREATMENT
     Route: 065
  32. DEXAMETHASONE. [Suspect]
     Active Substance: DEXAMETHASONE
     Dosage: FOURTH LINE TREATMENT
     Route: 065
  33. FLUDARABINE [Suspect]
     Active Substance: FLUDARABINE PHOSPHATE
     Indication: BONE MARROW CONDITIONING REGIMEN
     Dosage: EIGHTH LINE TREATMENT
     Route: 065
  34. FLUDARABINE [Suspect]
     Active Substance: FLUDARABINE PHOSPHATE
     Indication: PLASMA CELL MYELOMA
  35. CYCLOPHOSPHAMIDE. [Suspect]
     Active Substance: CYCLOPHOSPHAMIDE
     Dosage: SIXTH LINE TREATMENT
     Route: 065
  36. LENALIDOMIDE [Suspect]
     Active Substance: LENALIDOMIDE
     Indication: PLASMA CELL MYELOMA
     Dosage: SECOND LINE TREATMENT
     Route: 065
  37. LENALIDOMIDE [Suspect]
     Active Substance: LENALIDOMIDE
     Dosage: THIRD LINE TREATMENT
     Route: 065
  38. VENETOCLAX. [Suspect]
     Active Substance: VENETOCLAX
     Indication: PLASMA CELL MYELOMA
     Dosage: SEVENTH LINE TREATMENT
     Route: 065
  39. VENETOCLAX. [Suspect]
     Active Substance: VENETOCLAX
     Dosage: EIGHTH LINE TREATMENT
     Route: 065
  40. CARMUSTINE. [Suspect]
     Active Substance: CARMUSTINE
     Indication: PLASMA CELL MYELOMA
  41. TACROLIMUS. [Suspect]
     Active Substance: TACROLIMUS
     Indication: CHRONIC GRAFT VERSUS HOST DISEASE IN EYE
  42. RIBAVIRIN. [Concomitant]
     Active Substance: RIBAVIRIN
     Indication: PNEUMONIA RESPIRATORY SYNCYTIAL VIRAL
     Route: 065
  43. LEVOFLOXACIN. [Concomitant]
     Active Substance: LEVOFLOXACIN
     Indication: PNEUMONIA RESPIRATORY SYNCYTIAL VIRAL
  44. IODINE?131 [Concomitant]
     Active Substance: IODINE I-131
     Indication: THYROID CANCER
     Route: 065
  45. CISPLATIN. [Suspect]
     Active Substance: CISPLATIN
     Indication: PLASMA CELL MYELOMA
     Dosage: FIFTH LINE TREATMENT
     Route: 065
  46. DEXAMETHASONE. [Suspect]
     Active Substance: DEXAMETHASONE
     Dosage: THIRD  LINE TREATMENT
     Route: 065
  47. DEXAMETHASONE. [Suspect]
     Active Substance: DEXAMETHASONE
     Dosage: NINTH LINE TREATMENT
     Route: 065
  48. DOXORUBICIN [Suspect]
     Active Substance: DOXORUBICIN
     Indication: PLASMA CELL MYELOMA
     Dosage: EIGHTH LINE TREATMENT
     Route: 065
  49. MELPHALAN. [Suspect]
     Active Substance: MELPHALAN
     Indication: BONE MARROW CONDITIONING REGIMEN
     Dosage: EIGHTH LINE TREATMENT
     Route: 065
  50. ELOTUZUMAB. [Suspect]
     Active Substance: ELOTUZUMAB
     Indication: PLASMA CELL MYELOMA
     Dosage: THIRD LINE TREATMENT
     Route: 065
  51. POMALIDOMIDE [Suspect]
     Active Substance: POMALIDOMIDE
     Indication: PLASMA CELL MYELOMA
     Dosage: FIFTH LINE TREATMENT
     Route: 065
  52. SELINEXOR [Suspect]
     Active Substance: SELINEXOR
     Indication: PLASMA CELL MYELOMA
     Dosage: NINTH LINE TREATMENT
     Route: 065
  53. BENDAMUSTINE [Suspect]
     Active Substance: BENDAMUSTINE
     Indication: PLASMA CELL MYELOMA
     Route: 042
  54. BORTEZOMIB. [Suspect]
     Active Substance: BORTEZOMIB
     Dosage: SIXTH LINE THERAPY
     Route: 065
  55. TACROLIMUS. [Suspect]
     Active Substance: TACROLIMUS
     Indication: CHRONIC GRAFT VERSUS HOST DISEASE ORAL
     Dosage: (DURING CYCLE 13)
     Route: 065

REACTIONS (16)
  - Clostridium difficile colitis [Unknown]
  - Bacteraemia [Unknown]
  - Infection [Unknown]
  - Neutropenia [Unknown]
  - Diarrhoea [Unknown]
  - Pneumonia respiratory syncytial viral [Unknown]
  - Product use issue [Unknown]
  - Pneumonia [Unknown]
  - Ototoxicity [Unknown]
  - Pneumonia mycoplasmal [Unknown]
  - Drug ineffective [Unknown]
  - Fatigue [Unknown]
  - Hypoxia [Unknown]
  - Thrombocytopenia [Unknown]
  - Hypogammaglobulinaemia [Unknown]
  - Dysgeusia [Unknown]
